FAERS Safety Report 8359367-4 (Version None)
Quarter: 2012Q2

REPORT INFORMATION
  Report Type: 
  Country: None (occurrence: None)
  Receive Date: 20120514
  Receipt Date: 20120514
  Transmission Date: 20120825
  Serious: Yes (Hospitalization, Disabling)
  Sender: FDA-Public Use
  Company Number: None

PATIENT
  Age: 35 Year
  Sex: Female
  Weight: 63.5036 kg

DRUGS (1)
  1. DOMPERIDONE 90 MG [Suspect]
     Indication: LACTATION DISORDER
     Dosage: 30 MG 3 TIMES A DAY PO
     Route: 048
     Dates: start: 20120202, end: 20120420

REACTIONS (5)
  - SENSORY LOSS [None]
  - HYPOAESTHESIA [None]
  - MUSCULAR WEAKNESS [None]
  - DYSKINESIA [None]
  - MUSCLE TWITCHING [None]
